FAERS Safety Report 12328836 (Version 3)
Quarter: 2016Q3

REPORT INFORMATION
  Report Type: Spontaneous
  Country: US (occurrence: US)
  Receive Date: 20160503
  Receipt Date: 20160808
  Transmission Date: 20161109
  Serious: No
  Sender: FDA-Public Use
  Company Number: US-BEH-2015051113

PATIENT
  Sex: Female
  Weight: 37 kg

DRUGS (19)
  1. MIRALAX [Concomitant]
     Active Substance: POLYETHYLENE GLYCOL 3350
     Dosage: 17 G AS DIRECTED
     Route: 048
  2. CARBAGLU [Concomitant]
     Active Substance: CARGLUMIC ACID
     Dosage: 1 DOSE AS DIRECTED
     Route: 048
  3. LMX [Concomitant]
     Active Substance: LIDOCAINE
     Dosage: 4% PRIOR TO INFUSION
     Route: 061
  4. ACIDOPHILUS [Concomitant]
     Active Substance: LACTOBACILLUS ACIDOPHILUS
     Dosage: 1 DOSE AS DIRECTED
     Route: 048
  5. CARNITOR [Concomitant]
     Active Substance: LEVOCARNITINE
     Dosage: 11 ML, 4 TIMES A DAY
     Route: 048
  6. ZYRTEC [Concomitant]
     Active Substance: CETIRIZINE HYDROCHLORIDE
     Dosage: 1 TAB DAILY
     Route: 048
  7. DIPHENHYDRAMINE. [Concomitant]
     Active Substance: DIPHENHYDRAMINE
     Indication: ANAPHYLACTIC REACTION
     Dosage: PRN
     Route: 048
  8. SYNTHROID [Concomitant]
     Active Substance: LEVOTHYROXINE SODIUM
     Dosage: 1 DOSE DAILY, 125 MCG
     Route: 048
  9. ALBUTEROL. [Concomitant]
     Active Substance: ALBUTEROL
     Dosage: 1 DOSE AS NEEDED, INHALATION
  10. PREVACID [Concomitant]
     Active Substance: LANSOPRAZOLE
     Dosage: 30 MG BID
     Route: 048
  11. VITAMIN D [Concomitant]
     Active Substance: CHOLECALCIFEROL
     Dosage: 1 DOSE DAILY
  12. HIZENTRA [Suspect]
     Active Substance: HUMAN IMMUNOGLOBULIN G
     Indication: AMINO ACID METABOLISM DISORDER
     Route: 058
  13. ACETAMINOPHEN. [Concomitant]
     Active Substance: ACETAMINOPHEN
     Dosage: UD
     Route: 048
  14. EPIPEN [Concomitant]
     Active Substance: EPINEPHRINE
     Indication: ANAPHYLACTIC REACTION
     Route: 030
  15. NASONEX [Concomitant]
     Active Substance: MOMETASONE FUROATE
     Dosage: 1 DOSE AS DIRECTED
  16. ASPIRIN. [Concomitant]
     Active Substance: ASPIRIN
     Route: 048
  17. NYSTATIN. [Concomitant]
     Active Substance: NYSTATIN
     Dosage: 1 DOSE AS DIRECTED
     Route: 048
  18. HIZENTRA [Suspect]
     Active Substance: HUMAN IMMUNOGLOBULIN G
     Indication: HUMORAL IMMUNE DEFECT
     Route: 058
  19. ZOFRAN [Concomitant]
     Active Substance: ONDANSETRON HYDROCHLORIDE
     Dosage: 1 DOSE AS DIRECTED
     Route: 048

REACTIONS (1)
  - Application site pruritus [Unknown]
